FAERS Safety Report 7356167-9 (Version None)
Quarter: 2011Q1

REPORT INFORMATION
  Report Type: 
  Country: None (occurrence: None)
  Receive Date: 20110316
  Receipt Date: 20110311
  Transmission Date: 20110831
  Serious: Yes (Hospitalization)
  Sender: FDA-Public Use
  Company Number: CA-ABBOTT-11P-028-0705675-00

PATIENT
  Sex: Female
  Weight: 54.48 kg

DRUGS (5)
  1. PREDNISONE [Concomitant]
     Indication: ARTHRITIS
     Route: 048
     Dates: start: 20050101
  2. HUMIRA [Suspect]
     Indication: RHEUMATOID ARTHRITIS
     Route: 058
     Dates: start: 20090213, end: 20101109
  3. CODEINE [Concomitant]
     Indication: PAIN
     Route: 048
     Dates: start: 20100101
  4. NAPROXEN [Concomitant]
     Indication: ARTHRITIS
     Route: 048
     Dates: start: 20050101
  5. METHOTREXATE [Concomitant]
     Indication: ARTHRITIS
     Route: 058
     Dates: start: 20080101

REACTIONS (10)
  - VAGINITIS BACTERIAL [None]
  - PNEUMONIA [None]
  - SKIN INFECTION [None]
  - DYSPNOEA [None]
  - HEART RATE INCREASED [None]
  - LUNG INFECTION [None]
  - EYE INFECTION [None]
  - NASOPHARYNGITIS [None]
  - PULMONARY OEDEMA [None]
  - BACTERIAL INFECTION [None]
